FAERS Safety Report 16748557 (Version 1)
Quarter: 2019Q3

REPORT INFORMATION
  Report Type: Spontaneous
  Country: JP (occurrence: JP)
  Receive Date: 20190828
  Receipt Date: 20190828
  Transmission Date: 20191005
  Serious: Yes (Hospitalization, Other)
  Sender: FDA-Public Use
  Company Number: JP-BRISTOL-MYERS SQUIBB COMPANY-BMS-2019-082942

PATIENT
  Age: 77 Year
  Sex: Male
  Weight: 54.8 kg

DRUGS (7)
  1. DOCETAXEL. [Concomitant]
     Active Substance: DOCETAXEL
     Indication: NON-SMALL CELL LUNG CANCER RECURRENT
     Dosage: 60 MG/M2
     Route: 041
     Dates: start: 20190521, end: 20190626
  2. OPDIVO [Suspect]
     Active Substance: NIVOLUMAB
     Indication: NON-SMALL CELL LUNG CANCER RECURRENT
     Dosage: 240 MG
     Route: 041
     Dates: start: 20190521, end: 20190710
  3. ROSUVASTATIN. [Concomitant]
     Active Substance: ROSUVASTATIN
     Indication: HYPERLIPIDAEMIA
     Dosage: 2.5 MG
     Route: 048
  4. JUVELA N [Concomitant]
     Active Substance: TOCOPHERYL NICOTINATE, D-.ALPHA.
     Indication: PERIPHERAL ARTERIAL OCCLUSIVE DISEASE
     Dosage: 200 MG, Q8H
     Route: 048
  5. BUFFERIN [ACETYLSALICYLIC ACID;ALUMINIUM GLYCINATE] [Suspect]
     Active Substance: ASPIRIN\DIHYDROXYALUMINUM AMINOACETATE
     Indication: THROMBOSIS PROPHYLAXIS
     Dosage: 2 DF, Q12H?2019/7/24?
     Route: 048
  6. LIMAPROST ALFADEX SN [Concomitant]
     Indication: LUMBAR SPINAL STENOSIS
     Dosage: 5 ?G, Q8H
     Route: 048
  7. AMLODIPINE [Concomitant]
     Active Substance: AMLODIPINE BESYLATE
     Indication: HYPERTENSION
     Dosage: 2.5 MG
     Route: 048

REACTIONS (3)
  - Anaemia [Recovering/Resolving]
  - Gastric ulcer [Recovering/Resolving]
  - Gastrooesophageal reflux disease [Recovering/Resolving]

NARRATIVE: CASE EVENT DATE: 20190723
